FAERS Safety Report 8584574-5 (Version None)
Quarter: 2012Q3

REPORT INFORMATION
  Report Type: 
  Country: None (occurrence: None)
  Receive Date: 20120730
  Receipt Date: 20120713
  Transmission Date: 20120928
  Serious: Yes (Life-Threatening, Hospitalization, Other)
  Sender: FDA-Public Use
  Company Number: 2012SGN00313

PATIENT
  Age: 54 Year
  Sex: Male

DRUGS (1)
  1. ADCETRIS [Suspect]
     Indication: ANAPLASTIC LARGE CELL LYMPHOMA T- AND NULL-CELL TYPES
     Dates: start: 20120706

REACTIONS (10)
  - LIVER FUNCTION TEST ABNORMAL [None]
  - DECREASED APPETITE [None]
  - ALANINE AMINOTRANSFERASE INCREASED [None]
  - HEPATOMEGALY [None]
  - DIARRHOEA [None]
  - HYPERHIDROSIS [None]
  - ASPARTATE AMINOTRANSFERASE INCREASED [None]
  - BLOOD ALKALINE PHOSPHATASE INCREASED [None]
  - BLOOD BILIRUBIN INCREASED [None]
  - PYREXIA [None]
